FAERS Safety Report 12270630 (Version 1)
Quarter: 2016Q2

REPORT INFORMATION
  Report Type: Spontaneous
  Country: US (occurrence: US)
  Receive Date: 20160415
  Receipt Date: 20160415
  Transmission Date: 20160815
  Serious: No
  Sender: FDA-Public Use
  Company Number: US-APOTEX-2016AP006563

PATIENT
  Sex: Female
  Weight: 58.97 kg

DRUGS (2)
  1. PAXIL [Suspect]
     Active Substance: PAROXETINE HYDROCHLORIDE
     Indication: ANTIDEPRESSANT THERAPY
     Dosage: SMALLEST DOSE
     Route: 065
     Dates: start: 201206
  2. SYNTHROID [Concomitant]
     Active Substance: LEVOTHYROXINE SODIUM
     Indication: HYPOTHYROIDISM
     Dosage: 1.25 MG, QD
     Dates: start: 1997

REACTIONS (4)
  - Somnolence [Unknown]
  - Drug ineffective [Unknown]
  - Weight decreased [Unknown]
  - Hypersomnia [Unknown]
